FAERS Safety Report 13131023 (Version 2)
Quarter: 2017Q1

REPORT INFORMATION
  Report Type: Spontaneous
  Country: MX (occurrence: MX)
  Receive Date: 20170119
  Receipt Date: 20170130
  Transmission Date: 20170428
  Serious: Yes (Hospitalization)
  Sender: FDA-Public Use
  Company Number: MX-BIOMARINAP-MX-2017-112458

PATIENT
  Age: 8 Year
  Sex: Male
  Weight: 14 kg

DRUGS (1)
  1. ALDURAZYME [Suspect]
     Active Substance: LARONIDASE
     Indication: MUCOPOLYSACCHARIDOSIS I
     Dosage: UNK, QOW
     Route: 041
     Dates: start: 2015

REACTIONS (3)
  - Inappropriate schedule of drug administration [Unknown]
  - Joint dislocation [Recovered/Resolved]
  - Pain [Unknown]
